FAERS Safety Report 4331750-3 (Version None)
Quarter: 2004Q2

REPORT INFORMATION
  Report Type: 
  Country: None (occurrence: None)
  Receive Date: 20040405
  Receipt Date: 20030523
  Transmission Date: 20050107
  Serious: No
  Sender: FDA-Public Use
  Company Number: US-GLAXOSMITHKLINE-A0409391A

PATIENT
  Age: 7 Year
  Sex: Male

DRUGS (3)
  1. FLOVENT [Suspect]
     Indication: ASTHMA
     Dosage: 220MCG TWICE PER DAY
     Route: 055
     Dates: start: 20000101
  2. SINGULAIR [Concomitant]
  3. CLARITIN REDITABS [Concomitant]
     Route: 048

REACTIONS (1)
  - GROWTH RETARDATION [None]
